FAERS Safety Report 5368657-9 (Version None)
Quarter: 2007Q2

REPORT INFORMATION
  Report Type: 
  Country: None (occurrence: None)
  Receive Date: 20070625
  Receipt Date: 20070613
  Transmission Date: 20071010
  Serious: Yes (Other)
  Sender: FDA-Public Use
  Company Number: US-JNJFOC-20070603539

PATIENT
  Sex: Female
  Weight: 67.59 kg

DRUGS (6)
  1. EXTRA STRENGTH TYLENOL [Suspect]
     Route: 048
  2. EXTRA STRENGTH TYLENOL [Suspect]
     Indication: PROCEDURAL PAIN
     Dosage: 1000 MG ONE TO THREE TIMES A DAY AS NECESSARY
     Route: 048
  3. DYAZIDE [Concomitant]
  4. SPIRONOLACTONE [Concomitant]
  5. CLONIDINE [Concomitant]
  6. ALLERGY SHOTS [Concomitant]
     Dosage: WEEKLY

REACTIONS (5)
  - EYE PAIN [None]
  - EYE PRURITUS [None]
  - EYE SWELLING [None]
  - HYPERTENSION [None]
  - POST PROCEDURAL HAEMATOMA [None]
